FAERS Safety Report 10557286 (Version 2)
Quarter: 2014Q4

REPORT INFORMATION
  Report Type: Spontaneous
  Country: FR (occurrence: FR)
  Receive Date: 20141031
  Receipt Date: 20141120
  Transmission Date: 20150529
  Serious: Yes (Death)
  Sender: FDA-Public Use
  Company Number: FR-PFIZER INC-2014299768

PATIENT
  Age: 90 Year
  Sex: Female

DRUGS (11)
  1. AMLODIPINE BESILATE [Suspect]
     Active Substance: AMLODIPINE BESYLATE
     Dosage: 1 DF, 1X/DAY
     Route: 047
  2. ZESTORETIC [Suspect]
     Active Substance: HYDROCHLOROTHIAZIDE\LISINOPRIL
     Dosage: 1 DF (20MG/12.5MG), 1X/DAY
     Route: 048
  3. EUPANTOL [Suspect]
     Active Substance: PANTOPRAZOLE SODIUM
     Dosage: 20 MG, 1X/DAY
     Route: 048
  4. MOGADON [Suspect]
     Active Substance: NITRAZEPAM
     Dosage: 5 MG, 1X/DAY
     Route: 048
     Dates: end: 20140925
  5. SPECIAFOLDINE [Suspect]
     Active Substance: FOLIC ACID
     Dosage: 5 MG, 1X/DAY
     Route: 048
  6. KARDEGIC [Suspect]
     Active Substance: ASPIRIN LYSINE
     Dosage: 75 MG, 1X/DAY
     Route: 048
  7. IPRATROPIUM BROMIDE. [Suspect]
     Active Substance: IPRATROPIUM BROMIDE
     Dosage: UNK
     Route: 055
  8. CONTRAMAL [Concomitant]
     Active Substance: TRAMADOL HYDROCHLORIDE
     Indication: FEMUR FRACTURE
     Dosage: 100 MG/2ML, UNK
     Route: 017
     Dates: start: 20141001
  9. CORDARONE [Suspect]
     Active Substance: AMIODARONE HYDROCHLORIDE
     Dosage: 100 MG, 1X/DAY
     Route: 048
  10. TRANSIPEG [Suspect]
     Active Substance: POLYETHYLENE GLYCOL 3350
     Dosage: 5.9 G, 1X/DAY
     Route: 048
  11. ZOPICLONE [Suspect]
     Active Substance: ZOPICLONE
     Dosage: 1 DF, 1X/DAY
     Route: 048
     Dates: start: 20140925

REACTIONS (6)
  - Pneumonia aspiration [Fatal]
  - Musculoskeletal chest pain [Fatal]
  - Femur fracture [Fatal]
  - Vomiting [Fatal]
  - Acute respiratory distress syndrome [Fatal]
  - Fall [Fatal]

NARRATIVE: CASE EVENT DATE: 20140930
